FAERS Safety Report 6282820-4 (Version None)
Quarter: 2009Q3

REPORT INFORMATION
  Report Type: 
  Country: None (occurrence: None)
  Receive Date: 20090724
  Receipt Date: 20090715
  Transmission Date: 20100115
  Serious: Yes (Death, Life-Threatening, Other)
  Sender: FDA-Public Use
  Company Number: GB-ELI_LILLY_AND_COMPANY-GB200907003559

PATIENT
  Age: 46 Year
  Sex: Female

DRUGS (6)
  1. OLANZAPINE [Suspect]
     Indication: AFFECTIVE DISORDER
     Dates: start: 19990101, end: 20020101
  2. OLANZAPINE [Suspect]
     Dosage: 5 MG, UNK
     Dates: start: 20070101, end: 20081101
  3. OLANZAPINE [Suspect]
     Dosage: 10 MG, UNK
     Dates: start: 20081101, end: 20090615
  4. OLANZAPINE [Suspect]
     Dosage: 12.5 MG, UNK
     Dates: start: 20090616
  5. LORAZEPAM [Concomitant]
  6. DEPIXOL [Concomitant]
     Dosage: UNK, UNK
     Dates: start: 20020101, end: 20090401

REACTIONS (9)
  - APPARENT DEATH [None]
  - COMA [None]
  - EYE SWELLING [None]
  - HALLUCINATIONS, MIXED [None]
  - NASAL OEDEMA [None]
  - OEDEMA PERIPHERAL [None]
  - SHOCK [None]
  - TOXIC SHOCK SYNDROME [None]
  - WEIGHT INCREASED [None]
